FAERS Safety Report 5910497-3 (Version None)
Quarter: 2008Q4

REPORT INFORMATION
  Report Type: 
  Country: None (occurrence: None)
  Receive Date: 20081007
  Receipt Date: 20080204
  Transmission Date: 20090506
  Serious: No
  Sender: FDA-Public Use
  Company Number: US-ASTRAZENECA-2008UW02378

PATIENT
  Age: 83 Year
  Sex: Female
  Weight: 90.7 kg

DRUGS (3)
  1. ARIMIDEX [Suspect]
     Indication: BREAST CANCER FEMALE
     Route: 048
  2. BLOOD PRESSURE MEDICATION [Concomitant]
  3. DIABETES MEDICATION [Concomitant]

REACTIONS (3)
  - DIZZINESS [None]
  - OEDEMA PERIPHERAL [None]
  - OROPHARYNGEAL PAIN [None]
